FAERS Safety Report 7077957 (Version 5)
Quarter: 2012Q4

REPORT INFORMATION
  Report Type: 
  Country: GB (occurrence: GB)
  Receive Date: 20090811
  Receipt Date: 20120905
  Transmission Date: 20130627
  Serious: Yes (Hospitalization, Other)
  Sender: FDA-Public Use
  Company Number: PHHY2009GB31881

PATIENT
  Age: 70 Year
  Sex: Female

DRUGS (13)
  1. CLOZARIL [Suspect]
     Indication: SCHIZOPHRENIA
     Dosage: 3 tablets of 25 mg mane and 2 tablets of 100 mg plus 2 tablets of 25 mg at bedtime
     Route: 048
     Dates: start: 20020412
  2. CLOZARIL [Suspect]
     Dosage: 2 tablets of 25 mg at breakfast and 100 mg plus 25 mg at bedtime
     Dates: start: 20090818
  3. CLOZARIL [Suspect]
     Dosage: 12.5 mg, BID
  4. CLOZARIL [Suspect]
     Dosage: 25 mg x 3 Mane + 25 mg x 4.5 nocte
     Route: 048
     Dates: start: 20020812
  5. CLOZARIL [Suspect]
     Dosage: 25 mg x 3 at mane and 25 mg x 4 and half at nocte
     Dates: start: 20020812
  6. IRON SULFATE [Concomitant]
     Dates: start: 201102
  7. EPILIM MR [Concomitant]
     Dosage: 300 mg, mane/teatime
  8. FUROSEMIDE [Concomitant]
     Dosage: 40 mg, BID (2 in the mornings)
  9. ASPIRIN [Concomitant]
     Indication: CEREBRAL ISCHAEMIA
     Dates: start: 200909
  10. PREDNISOLONE [Concomitant]
     Indication: CHRONIC OBSTRUCTIVE PULMONARY DISEASE
     Dosage: 40 mg, QD for 6 days
  11. AMOXIL [Concomitant]
     Indication: CHRONIC OBSTRUCTIVE PULMONARY DISEASE
  12. STEROIDS NOS [Concomitant]
     Indication: CHRONIC OBSTRUCTIVE PULMONARY DISEASE
     Dates: start: 201106
  13. OMEPRAZOLE [Concomitant]
     Dosage: 20 mg, mane

REACTIONS (25)
  - Cerebral ischaemia [Unknown]
  - Loss of consciousness [Recovering/Resolving]
  - Chronic obstructive pulmonary disease [Unknown]
  - Hypokinesia [Recovering/Resolving]
  - Lower respiratory tract infection [Unknown]
  - Tardive dyskinesia [Recovering/Resolving]
  - Oesophagitis [Unknown]
  - Gastritis [Unknown]
  - Duodenitis [Unknown]
  - Hiatus hernia [Unknown]
  - Hypochromic anaemia [Unknown]
  - Red blood cell count decreased [Recovered/Resolved]
  - Haemoglobin decreased [Recovered/Resolved]
  - Conjunctival pallor [Unknown]
  - Dizziness [Unknown]
  - Orthostatic hypotension [Unknown]
  - Euphoric mood [Unknown]
  - Somnolence [Unknown]
  - Gait disturbance [Unknown]
  - Bruxism [Unknown]
  - Inappropriate affect [Unknown]
  - Logorrhoea [Unknown]
  - Scratch [Unknown]
  - Agitation [Unknown]
  - White blood cell count increased [Unknown]
